FAERS Safety Report 13111654 (Version 1)
Quarter: 2017Q1

REPORT INFORMATION
  Report Type: Spontaneous
  Country: FR (occurrence: FR)
  Receive Date: 20170112
  Receipt Date: 20170112
  Transmission Date: 20170428
  Serious: Yes (Hospitalization)
  Sender: FDA-Public Use
  Company Number: FR-MYLANLABS-16X-056-1263606-00

PATIENT

DRUGS (5)
  1. MESTINON [Interacting]
     Active Substance: PYRIDOSTIGMINE BROMIDE
     Indication: CONSTIPATION
     Dosage: UNK
     Route: 048
     Dates: start: 20160710
  2. MELATONINE (NOS) [Suspect]
     Active Substance: MELATONIN
     Indication: INSOMNIA
     Dosage: UNK
     Route: 048
     Dates: start: 201607
  3. ISOPTINE 120 MG [Suspect]
     Active Substance: VERAPAMIL HYDROCHLORIDE
     Indication: CLUSTER HEADACHE
     Dosage: 720MILLIGRAMTID
     Route: 048
     Dates: end: 20160714
  4. MESTINON [Interacting]
     Active Substance: PYRIDOSTIGMINE BROMIDE
     Dosage: UNK
     Dates: start: 20160711
  5. ATROPINE (NOS) [Concomitant]
     Indication: HEART RATE ABNORMAL
     Dosage: 1MILLIGRAM

REACTIONS (15)
  - Atrioventricular block [Recovered/Resolved]
  - Dyspnoea exertional [None]
  - Malaise [Recovered/Resolved]
  - Dyspnoea [Recovered/Resolved]
  - Drug interaction [Recovered/Resolved]
  - Dizziness [None]
  - Resting tremor [Unknown]
  - Palpitations [Recovered/Resolved]
  - Vomiting [Recovered/Resolved]
  - Hypotension [Recovered/Resolved]
  - Headache [Unknown]
  - Oedema peripheral [Recovered/Resolved]
  - Asthenia [Recovered/Resolved]
  - Hot flush [Recovered/Resolved]
  - Electrocardiogram QT prolonged [None]

NARRATIVE: CASE EVENT DATE: 201607
